FAERS Safety Report 5588080-1 (Version None)
Quarter: 2008Q1

REPORT INFORMATION
  Report Type: 
  Country: None (occurrence: None)
  Receive Date: 20080111
  Receipt Date: 20071218
  Transmission Date: 20080703
  Serious: Yes (Other)
  Sender: FDA-Public Use
  Company Number: GB-NOVOPROD-269345

PATIENT

DRUGS (2)
  1. KLIOVANCE [Suspect]
     Indication: DRUG USE FOR UNKNOWN INDICATION
     Dates: start: 20071001, end: 20071101
  2. KLIOVANCE [Suspect]

REACTIONS (3)
  - ABDOMINAL PAIN UPPER [None]
  - HAEMORRHAGE [None]
  - HEADACHE [None]
